FAERS Safety Report 13533717 (Version 1)
Quarter: 2017Q2

REPORT INFORMATION
  Report Type: Spontaneous
  Country: US (occurrence: US)
  Receive Date: 20170510
  Receipt Date: 20170510
  Transmission Date: 20170830
  Serious: Yes (Hospitalization, Other)
  Sender: FDA-Public Use
  Company Number: US-IMPAX LABORATORIES, INC-2017-IPXL-01272

PATIENT
  Age: 55 Year
  Sex: Female

DRUGS (1)
  1. METHADONE HYDROCHLORIDE. [Suspect]
     Active Substance: METHADONE HYDROCHLORIDE
     Indication: SUICIDE ATTEMPT
     Dosage: 30 PILLS, UNK
     Route: 065

REACTIONS (10)
  - Pyrexia [Unknown]
  - Blindness transient [Unknown]
  - Hypotension [Unknown]
  - Leukocytosis [Unknown]
  - Acute kidney injury [Unknown]
  - Unresponsive to stimuli [Unknown]
  - Intentional overdose [Unknown]
  - Posterior reversible encephalopathy syndrome [Unknown]
  - Headache [Unknown]
  - Generalised tonic-clonic seizure [Unknown]
